FAERS Safety Report 5203801-5 (Version None)
Quarter: 2007Q1

REPORT INFORMATION
  Report Type: 
  Country: None (occurrence: None)
  Receive Date: 20070110
  Receipt Date: 20070103
  Transmission Date: 20070707
  Serious: Yes (Other)
  Sender: FDA-Public Use
  Company Number: US-ROCHE-476964

PATIENT
  Age: 11 Year
  Sex: Male

DRUGS (1)
  1. TAMIFLU [Suspect]
     Indication: DRUG USE FOR UNKNOWN INDICATION
     Dosage: DOSEFORM REPORTED AS A TABLET
     Route: 065
     Dates: start: 20070102

REACTIONS (5)
  - ABNORMAL BEHAVIOUR [None]
  - DELIRIUM [None]
  - DRUG DISPENSING ERROR [None]
  - HALLUCINATION [None]
  - INCORRECT DOSE ADMINISTERED [None]
